FAERS Safety Report 4652354-9 (Version None)
Quarter: 2005Q2

REPORT INFORMATION
  Report Type: 
  Country: None (occurrence: None)
  Receive Date: 20050504
  Receipt Date: 20050427
  Transmission Date: 20051028
  Serious: Yes (Death, Hospitalization, Other)
  Sender: FDA-Public Use
  Company Number: CI-GLAXOSMITHKLINE-B0379691A

PATIENT
  Age: 63 Year
  Sex: Female

DRUGS (1)
  1. AZANTAC [Suspect]
     Indication: GASTRIC ULCER
     Dosage: 150MG SEE DOSAGE TEXT
     Route: 065
     Dates: start: 20050425, end: 20050425

REACTIONS (4)
  - ASTHENIA [None]
  - DEATH [None]
  - DIARRHOEA [None]
  - VOMITING [None]
